FAERS Safety Report 7879793-7 (Version None)
Quarter: 2011Q4

REPORT INFORMATION
  Report Type: 
  Country: None (occurrence: None)
  Receive Date: 20111101
  Receipt Date: 20111021
  Transmission Date: 20120403
  Serious: Yes (Other)
  Sender: FDA-Public Use
  Company Number: US-JNJFOC-20110810510

PATIENT
  Sex: Female
  Weight: 64.86 kg

DRUGS (7)
  1. AUGMENTIN [Concomitant]
     Indication: ABSCESS
     Route: 065
     Dates: start: 20110501
  2. AUGMENTIN [Concomitant]
     Route: 065
     Dates: start: 20110601
  3. ENTOCORT EC [Concomitant]
     Indication: CROHN'S DISEASE
     Route: 065
     Dates: start: 20110501
  4. REMICADE [Suspect]
     Indication: CROHN'S DISEASE
     Dosage: HAD 3 INDUCTION DOSES
     Route: 042
     Dates: start: 20110701, end: 20110701
  5. ENTOCORT EC [Concomitant]
     Route: 065
     Dates: start: 20110601
  6. AUGMENTIN [Concomitant]
     Indication: FISTULA
     Route: 065
     Dates: start: 20110501
  7. AUGMENTIN [Concomitant]
     Route: 065
     Dates: start: 20110601

REACTIONS (1)
  - VISUAL FIELD DEFECT [None]
